FAERS Safety Report 16207312 (Version 4)
Quarter: 2019Q2

REPORT INFORMATION
  Report Type: Spontaneous
  Country: JP (occurrence: JP)
  Receive Date: 20190417
  Receipt Date: 20190420
  Transmission Date: 20190711
  Serious: Yes (Other)
  Sender: FDA-Public Use
  Company Number: PHJP2019JP004352

PATIENT
  Age: 45 Year
  Sex: Male

DRUGS (1)
  1. CICLOSPORIN [Suspect]
     Active Substance: CYCLOSPORINE
     Indication: APLASTIC ANAEMIA
     Dosage: 300 MG, QD
     Route: 048

REACTIONS (7)
  - Tongue ulceration [Recovering/Resolving]
  - Oesophageal disorder [Recovering/Resolving]
  - Lymphadenopathy [Unknown]
  - Abdominal pain upper [Unknown]
  - Epstein Barr virus positive mucocutaneous ulcer [Recovering/Resolving]
  - Oropharyngeal discomfort [Unknown]
  - Mouth ulceration [Recovering/Resolving]
